FAERS Safety Report 8410784-3 (Version None)
Quarter: 2012Q2

REPORT INFORMATION
  Report Type: 
  Country: None (occurrence: None)
  Receive Date: 20120529
  Receipt Date: 20051215
  Transmission Date: 20120825
  Serious: Yes (Hospitalization)
  Sender: FDA-Public Use
  Company Number: 15691-USA-05-3167

PATIENT
  Age: 65 Year
  Sex: Male

DRUGS (14)
  1. LANTUS [Concomitant]
  2. NORVASC [Concomitant]
  3. VITAMIN E [Concomitant]
  4. LIPITOR [Concomitant]
  5. PROCRIT [Concomitant]
  6. TOLVAPTAN (TOLVAPTAN(V4.1)) 30MG [Suspect]
     Indication: CARDIAC FAILURE CONGESTIVE
     Dosage: 30 MG, QD, ORAL
     Route: 048
     Dates: start: 20040904, end: 20051204
  7. TOLVAPTAN (TOLVAPTAN(V4.1)) 30MG [Suspect]
     Indication: CARDIAC FAILURE CONGESTIVE
     Dosage: 30 MG, QD, ORAL
     Route: 048
     Dates: start: 20051207
  8. ASPIRIN [Concomitant]
  9. IMDUR [Concomitant]
  10. LASIX [Concomitant]
  11. COUMADIN [Concomitant]
  12. NEURONTIN [Concomitant]
  13. COREG [Concomitant]
  14. PLAVIX [Concomitant]

REACTIONS (7)
  - INSOMNIA [None]
  - CONDITION AGGRAVATED [None]
  - DIALYSIS [None]
  - MYOCARDIAL INFARCTION [None]
  - RENAL FAILURE [None]
  - DECREASED APPETITE [None]
  - NAUSEA [None]
